FAERS Safety Report 21832646 (Version 2)
Quarter: 2023Q1

REPORT INFORMATION
  Report Type: Report from Study
  Country: CN (occurrence: CN)
  Receive Date: 20230106
  Receipt Date: 20230209
  Transmission Date: 20230417
  Serious: Yes (Hospitalization)
  Sender: FDA-Public Use
  Company Number: CN-JNJFOC-20230102317

PATIENT
  Age: 71 Year
  Sex: Male
  Weight: 57 kg

DRUGS (3)
  1. DARATUMUMAB [Suspect]
     Active Substance: DARATUMUMAB
     Indication: Plasma cell myeloma
     Dosage: LAST DOSE PRIOR TO ONSET OF EVENT WAS 18-NOV-2022
     Route: 058
     Dates: start: 20200326
  2. XUAN MAI GAN JIE [Concomitant]
     Indication: Upper respiratory tract infection
     Route: 048
     Dates: start: 20221217, end: 20221222
  3. AMBROXOL HYDROCHLORIDE [Concomitant]
     Active Substance: AMBROXOL HYDROCHLORIDE
     Indication: Upper respiratory tract infection
     Dosage: PCS
     Route: 048
     Dates: start: 20221217, end: 20221222

REACTIONS (1)
  - COVID-19 pneumonia [Recovered/Resolved]

NARRATIVE: CASE EVENT DATE: 20221231
